FAERS Safety Report 9490724 (Version 1)
Quarter: 2013Q3

REPORT INFORMATION
  Report Type: Spontaneous
  Country: SE (occurrence: SE)
  Receive Date: 20130830
  Receipt Date: 20130830
  Transmission Date: 20140515
  Serious: Yes (Hospitalization)
  Sender: FDA-Public Use
  Company Number: SE-RANBAXY-2013R1-72573

PATIENT
  Age: 60 Year
  Sex: Female

DRUGS (5)
  1. ACICLOVIR [Suspect]
     Indication: MENINGITIS BACTERIAL
     Route: 048
  2. ACICLOVIR [Suspect]
     Dosage: UNK
     Route: 042
  3. VALACICLOVIR [Suspect]
     Indication: HERPES VIRUS INFECTION
     Dosage: 6G, DAILY
     Route: 065
  4. VALACICLOVIR [Suspect]
     Indication: HERPES VIRUS INFECTION
     Dosage: 4G, DAILY
     Route: 065
  5. ACICLOVIR [Suspect]
     Indication: MENINGITIS BACTERIAL
     Dosage: UNK
     Route: 042

REACTIONS (2)
  - Renal impairment [Recovered/Resolved]
  - Neuropsychiatric syndrome [Recovered/Resolved]
